FAERS Safety Report 8204100-X (Version None)
Quarter: 2012Q1

REPORT INFORMATION
  Report Type: 
  Country: None (occurrence: None)
  Receive Date: 20120227
  Receipt Date: 20120102
  Transmission Date: 20120608
  Serious: Yes (Hospitalization)
  Sender: FDA-Public Use
  Company Number: 340045

PATIENT
  Sex: Male

DRUGS (3)
  1. VICTOZA [Suspect]
     Indication: TYPE 2 DIABETES MELLITUS
     Dosage: 0.6 MG, QD (USED FOR 3 DAYS), SUBCUTANEOUS
     Route: 058
     Dates: start: 20111101, end: 20111101
  2. VICTOZA [Suspect]
     Indication: BLOOD GLUCOSE FLUCTUATION
     Dosage: 0.6 MG, QD (USED FOR 3 DAYS), SUBCUTANEOUS
     Route: 058
     Dates: start: 20111101, end: 20111101
  3. INSULIN (INSULIN) [Concomitant]

REACTIONS (1)
  - PANCREATITIS [None]
